FAERS Safety Report 11545160 (Version 2)
Quarter: 2015Q4

REPORT INFORMATION
  Report Type: Spontaneous
  Country: FR (occurrence: FR)
  Receive Date: 20150924
  Receipt Date: 20151014
  Transmission Date: 20160304
  Serious: Yes (Hospitalization)
  Sender: FDA-Public Use
  Company Number: FR-PFIZER INC-2015283190

PATIENT
  Age: 25 Year
  Sex: Male
  Weight: 57 kg

DRUGS (4)
  1. XALKORI [Suspect]
     Active Substance: CRIZOTINIB
     Indication: METASTATIC BRONCHIAL CARCINOMA
     Dosage: 250 MG, 2X/DAY
     Dates: start: 201402
  2. CORTANCYL [Concomitant]
     Active Substance: PREDNISONE
     Indication: METASTASES TO CENTRAL NERVOUS SYSTEM
     Dosage: 10 MG, 1X/DAY
  3. CACIT D3 [Concomitant]
     Active Substance: CALCIUM\CHOLECALCIFEROL
     Indication: METASTASES TO CENTRAL NERVOUS SYSTEM
     Dosage: 1 DF, DAILY
  4. RISPERDAL [Suspect]
     Active Substance: RISPERIDONE
     Indication: SCHIZOPHRENIA
     Dosage: 4 MG, DAILY
     Route: 048
     Dates: start: 201404

REACTIONS (3)
  - Tremor [Unknown]
  - Disease progression [Unknown]
  - Metastatic bronchial carcinoma [Unknown]

NARRATIVE: CASE EVENT DATE: 2015
